FAERS Safety Report 13012113 (Version 7)
Quarter: 2018Q4

REPORT INFORMATION
  Report Type: Report from Study
  Country: CA (occurrence: CA)
  Receive Date: 20161209
  Receipt Date: 20181214
  Transmission Date: 20190204
  Serious: Yes (Other)
  Sender: FDA-Public Use
  Company Number: PHHY2016CA136442

PATIENT
  Age: 72 Year
  Sex: Female

DRUGS (4)
  1. TASIGNA [Suspect]
     Active Substance: NILOTINIB
     Indication: CHRONIC MYELOID LEUKAEMIA
     Dosage: 400 MG, BID
     Route: 048
     Dates: start: 20160927
  2. IRON [Concomitant]
     Active Substance: IRON
     Indication: ANAEMIA
     Dosage: ONCE A WEEK FOR 4 WEEKS
     Route: 042
  3. IRON [Concomitant]
     Active Substance: IRON
     Dosage: EVERY 2 WEEKS
     Route: 042
  4. IRON [Concomitant]
     Active Substance: IRON
     Dosage: UNK
     Route: 042
     Dates: start: 20170105

REACTIONS (19)
  - Dizziness [Unknown]
  - Nervous system disorder [Unknown]
  - Intestinal haemorrhage [Unknown]
  - Amnesia [Unknown]
  - Fatigue [Unknown]
  - Abdominal discomfort [Unknown]
  - Anorectal discomfort [Unknown]
  - Musculoskeletal discomfort [Unknown]
  - Tinnitus [Unknown]
  - Abdominal pain upper [Recovered/Resolved]
  - Dry eye [Unknown]
  - Headache [Unknown]
  - Limb discomfort [Unknown]
  - Haematochezia [Recovered/Resolved]
  - Diarrhoea haemorrhagic [Unknown]
  - Tumour marker abnormal [Unknown]
  - Product storage error [Unknown]
  - Dyspepsia [Unknown]
  - Bone pain [Unknown]

NARRATIVE: CASE EVENT DATE: 20160928
